FAERS Safety Report 7860871-3 (Version None)
Quarter: 2011Q4

REPORT INFORMATION
  Report Type: 
  Country: None (occurrence: None)
  Receive Date: 20111027
  Receipt Date: 20111018
  Transmission Date: 20120403
  Serious: Yes (Hospitalization)
  Sender: FDA-Public Use
  Company Number: FR-ASTRAZENECA-2011SE63173

PATIENT
  Sex: Male

DRUGS (9)
  1. AMLODIPINE BESYLATE [Concomitant]
     Dates: start: 20110504
  2. ZOLMITRIPTAN [Suspect]
     Route: 048
     Dates: start: 20110830, end: 20110830
  3. IRBESARTAN [Concomitant]
     Indication: HYPERTENSION
  4. HYPERIUM [Concomitant]
     Indication: HYPERTENSION
     Dates: start: 20110629
  5. ZOLMITRIPTAN [Suspect]
     Indication: MIGRAINE
     Dosage: AS REQUIRED
     Route: 048
  6. AMLODIPINE BESYLATE [Concomitant]
     Indication: HYPERTENSION
     Dates: start: 20110418, end: 20110503
  7. NEXAVAR [Suspect]
     Indication: MALIGNANT MELANOMA
     Route: 048
     Dates: start: 20110414, end: 20110814
  8. FENOFIBRATE [Concomitant]
     Indication: HYPERLIPIDAEMIA
  9. TEMODAL [Concomitant]
     Indication: MALIGNANT MELANOMA
     Dosage: 150 MG/M2 ONCE DAILY FOR 5 DAYS FOLLOWED BY 23 DAYS WITHOUT TREATMENT
     Dates: start: 20110414

REACTIONS (2)
  - VISUAL ACUITY REDUCED [None]
  - ISCHAEMIC STROKE [None]
